FAERS Safety Report 21989869 (Version 1)
Quarter: 2023Q1

REPORT INFORMATION
  Report Type: Spontaneous
  Country: BR (occurrence: BR)
  Receive Date: 20230214
  Receipt Date: 20230214
  Transmission Date: 20230418
  Serious: Yes (Death, Other)
  Sender: FDA-Public Use
  Company Number: BR-PFIZER INC-PV202300027066

PATIENT
  Age: 38 Year
  Sex: Female

DRUGS (1)
  1. MYLOTARG [Suspect]
     Active Substance: GEMTUZUMAB OZOGAMICIN
     Indication: Acute myeloid leukaemia
     Dosage: UNK

REACTIONS (3)
  - Hypovolaemic shock [Fatal]
  - Gastric haemorrhage [Fatal]
  - Transaminases abnormal [Fatal]

NARRATIVE: CASE EVENT DATE: 20220101
